FAERS Safety Report 6486522-0 (Version None)
Quarter: 2009Q4

REPORT INFORMATION
  Report Type: 
  Country: None (occurrence: None)
  Receive Date: 20091210
  Receipt Date: 20091201
  Transmission Date: 20100525
  Serious: Yes (Other)
  Sender: FDA-Public Use
  Company Number: FI-JNJFOC-20090205390

PATIENT
  Sex: Female

DRUGS (4)
  1. REMICADE [Suspect]
     Indication: MYALGIA
     Route: 042
  2. METHOTREXATE [Concomitant]
     Route: 048
  3. OXIKLORIN [Concomitant]
  4. MEASLES, MUMPS AND RUBELLA VACCINE [Concomitant]

REACTIONS (5)
  - ALOPECIA [None]
  - ARTHRALGIA [None]
  - OCULAR VASCULITIS [None]
  - OPTIC ISCHAEMIC NEUROPATHY [None]
  - VISUAL IMPAIRMENT [None]
